FAERS Safety Report 22969203 (Version 2)
Quarter: 2023Q4

REPORT INFORMATION
  Report Type: Spontaneous
  Country: FR (occurrence: FR)
  Receive Date: 20230922
  Receipt Date: 20231005
  Transmission Date: 20240109
  Serious: Yes (Hospitalization, Other)
  Sender: FDA-Public Use
  Company Number: FR-AFSSAPS-PB2023001067

PATIENT
  Age: 39 Year
  Sex: Female
  Weight: 98.5 kg

DRUGS (8)
  1. FLUOXETINE [Suspect]
     Active Substance: FLUOXETINE HYDROCHLORIDE
     Indication: Product used for unknown indication
     Dosage: 30 DOSAGE FORM (30 TABS X20 MG)
     Route: 048
     Dates: start: 20230813
  2. CYAMEMAZINE [Suspect]
     Active Substance: CYAMEMAZINE
     Indication: Product used for unknown indication
     Dosage: 30 DOSAGE FORM (30 TSP)
     Route: 048
     Dates: start: 20230813
  3. BROMAZEPAM [Suspect]
     Active Substance: BROMAZEPAM
     Indication: Product used for unknown indication
     Dosage: 30 DOSAGE FORM (30 TSP)
     Route: 048
     Dates: start: 20230813
  4. ADVIL [Suspect]
     Active Substance: IBUPROFEN
     Indication: Product used for unknown indication
     Dosage: UNK
     Route: 048
     Dates: start: 20230813
  5. CLONIDINE [Concomitant]
     Active Substance: CLONIDINE
     Indication: Nightmare
     Dosage: 2 DOSAGE FORM  IN 1 DAY; IN THE EVENING
     Route: 065
  6. CLONIDINE [Concomitant]
     Active Substance: CLONIDINE
     Indication: Poisoning deliberate
  7. VENLAFAXINE [Concomitant]
     Active Substance: VENLAFAXINE HYDROCHLORIDE
     Indication: Poisoning deliberate
     Dosage: 150 MILLIGRAM, EVERY MORNING
     Route: 065
  8. MELATONIN [Concomitant]
     Active Substance: MELATONIN
     Indication: Poisoning deliberate
     Dosage: 2 DOSAGE FORM IN THE EVENING
     Route: 065

REACTIONS (5)
  - Coma [Recovered/Resolved]
  - Pneumonia aspiration [Recovered/Resolved]
  - Suicide attempt [Recovered/Resolved]
  - Toxicity to various agents [Recovered/Resolved]
  - Hyperleukocytosis [Recovered/Resolved]

NARRATIVE: CASE EVENT DATE: 20230813
